FAERS Safety Report 11962567 (Version 2)
Quarter: 2016Q1

REPORT INFORMATION
  Report Type: Spontaneous
  Country: EC (occurrence: EC)
  Receive Date: 20160126
  Receipt Date: 20160212
  Transmission Date: 20160526
  Serious: Yes (Death, Hospitalization, Other)
  Sender: FDA-Public Use
  Company Number: EC-ROCHE-1700211

PATIENT
  Age: 69 Year
  Sex: Male

DRUGS (10)
  1. PREDNISONE. [Concomitant]
     Active Substance: PREDNISONE
  2. IPRATROPIUM [Concomitant]
     Active Substance: IPRATROPIUM
  3. SIMVASTATIN. [Concomitant]
     Active Substance: SIMVASTATIN
  4. ASPIRIN. [Concomitant]
     Active Substance: ASPIRIN
  5. LORATADINE. [Concomitant]
     Active Substance: LORATADINE
     Route: 065
  6. MOMETASONA FUROATO [Concomitant]
  7. XOLAIR [Suspect]
     Active Substance: OMALIZUMAB
     Indication: ASTHMA
     Route: 058
     Dates: start: 20130408, end: 20140313
  8. TIOTROPIUM [Concomitant]
     Active Substance: TIOTROPIUM
     Route: 065
  9. SALBUTAMOL [Concomitant]
     Active Substance: ALBUTEROL
  10. ENALAPRIL [Concomitant]
     Active Substance: ENALAPRIL

REACTIONS (12)
  - Asthmatic crisis [Fatal]
  - Septic shock [Fatal]
  - Blood glucose increased [Unknown]
  - Respiratory failure [Unknown]
  - Tricuspid valve incompetence [Unknown]
  - Bradycardia [Unknown]
  - Pneumonia staphylococcal [Unknown]
  - Pneumothorax [Unknown]
  - Acinetobacter test positive [Unknown]
  - Cardiac arrest [Unknown]
  - Pneumonia [Unknown]
  - Mitral valve calcification [Unknown]

NARRATIVE: CASE EVENT DATE: 20151225
